FAERS Safety Report 6390840-4 (Version None)
Quarter: 2009Q4

REPORT INFORMATION
  Report Type: 
  Country: None (occurrence: None)
  Receive Date: 20091001
  Receipt Date: 20090831
  Transmission Date: 20100525
  Serious: No
  Sender: FDA-Public Use
  Company Number: 1000008560

PATIENT
  Age: 78 Year
  Sex: Female

DRUGS (3)
  1. BYSTOLIC [Suspect]
     Indication: HYPERTENSION
     Dosage: 10 MG (10 MG, 1 IN 1 D), ORAL
     Route: 048
     Dates: start: 20090828
  2. BENICAR (40 MILLIGRAM) [Concomitant]
  3. TEKTURNA (300 MILLIGRAM) [Concomitant]

REACTIONS (2)
  - HEADACHE [None]
  - INSOMNIA [None]
